FAERS Safety Report 24880372 (Version 1)
Quarter: 2025Q1

REPORT INFORMATION
  Report Type: Spontaneous
  Country: US (occurrence: None)
  Receive Date: 20250123
  Receipt Date: 20250123
  Transmission Date: 20250408
  Serious: Yes (Other)
  Sender: FDA-CTU
  Company Number: None

PATIENT
  Age: 74 Year
  Sex: Male
  Weight: 75.15 kg

DRUGS (5)
  1. CIPROFLOXACIN [Suspect]
     Active Substance: CIPROFLOXACIN
     Indication: Localised infection
     Dosage: 1 CAPSULE TWICE A DAY ORAL ?
     Route: 048
     Dates: start: 20240812, end: 20241102
  2. Aleve Naproxen [Concomitant]
  3. QUERCETIN [Concomitant]
     Active Substance: QUERCETIN
  4. VITAMIN D3 [Concomitant]
     Active Substance: CHOLECALCIFEROL
  5. herbal analgesic [Concomitant]

REACTIONS (8)
  - Inflammatory marker increased [None]
  - Joint swelling [None]
  - Joint swelling [None]
  - Rash erythematous [None]
  - Osteomyelitis [None]
  - Amputation [None]
  - Localised infection [None]
  - Impaired quality of life [None]

NARRATIVE: CASE EVENT DATE: 20240919
